FAERS Safety Report 4791915-3 (Version None)
Quarter: 2005Q4

REPORT INFORMATION
  Report Type: 
  Country: None (occurrence: None)
  Receive Date: 20051005
  Receipt Date: 20050922
  Transmission Date: 20060501
  Serious: Yes (Death, Other)
  Sender: FDA-Public Use
  Company Number: 2005-BP-16800RO

PATIENT
  Age: 92 Year
  Sex: Male

DRUGS (2)
  1. CLARITHROMYCIN [Suspect]
     Indication: PNEUMONIA
     Dosage: 500 MG BID (NR), PO
     Route: 048
  2. COLCHICINE (COLCHICINE) [Suspect]
     Indication: GOUT
     Dosage: 0.5 MG BID (NR), PO
     Route: 048

REACTIONS (6)
  - ABDOMINAL PAIN [None]
  - DIARRHOEA [None]
  - DRUG INTERACTION [None]
  - DYSPNOEA [None]
  - GOUT [None]
  - RENAL FAILURE ACUTE [None]
